FAERS Safety Report 16710303 (Version 1)
Quarter: 2019Q3

REPORT INFORMATION
  Report Type: Spontaneous
  Country: US (occurrence: US)
  Receive Date: 20190816
  Receipt Date: 20190816
  Transmission Date: 20191004
  Serious: No
  Sender: FDA-Public Use
  Company Number: US-BAYER-2019-151530

PATIENT
  Age: 53 Year
  Sex: Female

DRUGS (1)
  1. ESTRADIOL HEMIHYDRATE [Suspect]
     Active Substance: ESTRADIOL HEMIHYDRATE
     Route: 062

REACTIONS (6)
  - Device used for unapproved schedule [None]
  - Product adhesion issue [None]
  - Product prescribing issue [None]
  - Application site rash [Recovered/Resolved]
  - Wrong technique in product usage process [None]
  - Application site pain [Recovering/Resolving]

NARRATIVE: CASE EVENT DATE: 201907
